FAERS Safety Report 9433016 (Version 1)
Quarter: 2013Q3

REPORT INFORMATION
  Report Type: Spontaneous
  Country: IL (occurrence: None)
  Receive Date: 20130729
  Receipt Date: 20130729
  Transmission Date: 20140515
  Serious: Yes (Death, Hospitalization)
  Sender: FDA-Public Use
  Company Number: 2013CP000088

PATIENT
  Sex: Female

DRUGS (1)
  1. PERFALGAN [Suspect]
     Indication: PAIN

REACTIONS (1)
  - Hepatic failure [None]
